FAERS Safety Report 8493387-4 (Version None)
Quarter: 2012Q2

REPORT INFORMATION
  Report Type: 
  Country: None (occurrence: None)
  Receive Date: 20120628
  Receipt Date: 20120619
  Transmission Date: 20120825
  Serious: Yes (Other)
  Sender: FDA-Public Use
  Company Number: 2012-ES-0008

PATIENT
  Age: 52 Year
  Sex: Female

DRUGS (4)
  1. OXYCODONE HCL [Concomitant]
  2. ALTERNATIVE/COMPLEMENTARY MEDICINE NOS [Concomitant]
  3. DULOXETINE HYDROCHLORIDE [Concomitant]
  4. FENTANYL CITRATE [Suspect]
     Indication: BREAKTHROUGH PAIN
     Dosage: PRN, APPROX 18 X DAY

REACTIONS (8)
  - WITHDRAWAL SYNDROME [None]
  - ABNORMAL BEHAVIOUR [None]
  - AGGRESSION [None]
  - DRUG DEPENDENCE [None]
  - SEPSIS [None]
  - DISEASE COMPLICATION [None]
  - INTENTIONAL DRUG MISUSE [None]
  - DRUG ABUSE [None]
